FAERS Safety Report 5956333-0 (Version None)
Quarter: 2008Q4

REPORT INFORMATION
  Report Type: 
  Country: None (occurrence: None)
  Receive Date: 20081118
  Receipt Date: 20081110
  Transmission Date: 20090506
  Serious: Yes (Disabling, Other)
  Sender: FDA-Public Use
  Company Number: PHEH2008US09515

PATIENT
  Sex: Male
  Weight: 87.075 kg

DRUGS (4)
  1. GLEEVEC [Suspect]
     Indication: CHRONIC MYELOID LEUKAEMIA
     Dosage: 400 MG, QD
     Route: 048
     Dates: start: 20060428
  2. GLEEVEC [Suspect]
     Dosage: 600 MG, QD
     Route: 048
  3. GLEEVEC [Suspect]
     Dosage: 400 MG, QD
     Dates: start: 20080101
  4. ANTINEOPLASTIC AGENTS [Concomitant]

REACTIONS (13)
  - ABDOMINAL PAIN UPPER [None]
  - ALVEOLOPLASTY [None]
  - BLOOD UREA NITROGEN/CREATININE RATIO DECREASED [None]
  - CARBON DIOXIDE INCREASED [None]
  - DENTAL CARIES [None]
  - DENTAL OPERATION [None]
  - DIARRHOEA [None]
  - ENAMEL ANOMALY [None]
  - GENERAL ANAESTHESIA [None]
  - GLOMERULAR FILTRATION RATE DECREASED [None]
  - HYPERTENSION [None]
  - TOOTH EXTRACTION [None]
  - TOOTH FRACTURE [None]
